FAERS Safety Report 22217245 (Version 1)
Quarter: 2023Q2

REPORT INFORMATION
  Report Type: Report from Study
  Country: NL (occurrence: NL)
  Receive Date: 20230417
  Receipt Date: 20230417
  Transmission Date: 20230721
  Serious: Yes (Hospitalization)
  Sender: FDA-Public Use
  Company Number: NL-JNJFOC-20230430317

PATIENT
  Age: 73 Year
  Sex: Female
  Weight: 104 kg

DRUGS (20)
  1. OPSUMIT [Suspect]
     Active Substance: MACITENTAN
     Indication: Pulmonary arterial hypertension
     Dosage: 10 MG, QD
     Route: 048
     Dates: start: 20180502
  2. UPTRAVI [Suspect]
     Active Substance: SELEXIPAG
     Indication: Pulmonary arterial hypertension
     Dosage: 400 MCG, QD
     Route: 048
     Dates: start: 20190430, end: 20190702
  3. UPTRAVI [Suspect]
     Active Substance: SELEXIPAG
     Dosage: 800 MCG
     Route: 048
     Dates: start: 20190702
  4. UPTRAVI [Suspect]
     Active Substance: SELEXIPAG
     Dosage: 2000 MCG, QD
     Route: 048
     Dates: start: 20191008, end: 20191112
  5. UPTRAVI [Suspect]
     Active Substance: SELEXIPAG
     Dosage: 2400 MCG, QD
     Route: 048
     Dates: start: 20191112, end: 20191212
  6. UPTRAVI [Suspect]
     Active Substance: SELEXIPAG
     Dosage: 3200 MCG, QD
     Route: 048
     Dates: start: 20200105, end: 20200120
  7. UPTRAVI [Suspect]
     Active Substance: SELEXIPAG
     Dosage: 2800 MCG, QD
     Route: 048
     Dates: start: 20200120
  8. UPTRAVI [Suspect]
     Active Substance: SELEXIPAG
     Dosage: 800 MCG
     Route: 048
     Dates: start: 20190703, end: 20191007
  9. SILDENAFIL [Concomitant]
     Active Substance: SILDENAFIL
     Dosage: 60 MG, QD
     Route: 048
     Dates: start: 20180723, end: 20181022
  10. RIOCIGUAT [Concomitant]
     Active Substance: RIOCIGUAT
     Dosage: 7.5 UNK
     Route: 048
     Dates: start: 20181121, end: 20190131
  11. TADALAFIL [Concomitant]
     Active Substance: TADALAFIL
     Dosage: 40 MG, QD
     Route: 048
     Dates: start: 20180514, end: 20180618
  12. CALCIUM [Concomitant]
     Active Substance: CALCIUM
     Indication: Coronary artery bypass
     Dosage: UNK
     Route: 048
     Dates: start: 2017
  13. PANTOPRAZOLE SODIUM [Concomitant]
     Active Substance: PANTOPRAZOLE SODIUM
     Indication: Gastrooesophageal reflux disease
     Dosage: UNK
     Route: 048
  14. BUMETANIDE [Concomitant]
     Active Substance: BUMETANIDE
     Indication: Left ventricular failure
     Dosage: UNK
     Route: 048
     Dates: end: 20190702
  15. METOPROLOL [Concomitant]
     Active Substance: METOPROLOL
     Indication: Myocardial ischaemia
     Dosage: UNK
     Route: 048
     Dates: start: 2017
  16. METFORMIN [Concomitant]
     Active Substance: METFORMIN HYDROCHLORIDE
     Indication: Type 2 diabetes mellitus
     Dosage: UNK
     Route: 048
  17. INSULIN NOS [Concomitant]
     Active Substance: INSULIN NOS
     Indication: Type 2 diabetes mellitus
     Dosage: UNK
     Route: 058
  18. EZETIMIBE\SIMVASTATIN [Concomitant]
     Active Substance: EZETIMIBE\SIMVASTATIN
     Indication: Blood cholesterol increased
     Dosage: UNK
     Route: 048
     Dates: start: 2017
  19. TICAGRELOR [Concomitant]
     Active Substance: TICAGRELOR
     Indication: Coronary artery bypass
     Dosage: UNK
     Route: 048
     Dates: start: 2017
  20. FUROSEMIDE [Concomitant]
     Active Substance: FUROSEMIDE
     Indication: Left ventricular failure
     Dosage: UNK
     Route: 048
     Dates: start: 20190702

REACTIONS (14)
  - Melaena [Recovered/Resolved]
  - Anaemia [Recovered/Resolved]
  - Red blood cell transfusion [Recovered/Resolved]
  - Right ventricular failure [Recovered/Resolved]
  - Diarrhoea [Recovering/Resolving]
  - Haemoglobin decreased [Unknown]
  - Eye pruritus [Unknown]
  - Dyspnoea [Unknown]
  - Nausea [Unknown]
  - Pulmonary arterial hypertension [Unknown]
  - Disease progression [Unknown]
  - Incontinence [Unknown]
  - Flushing [Unknown]
  - Dyspepsia [Unknown]

NARRATIVE: CASE EVENT DATE: 20190408
